FAERS Safety Report 24601803 (Version 1)
Quarter: 2024Q4

REPORT INFORMATION
  Report Type: Spontaneous
  Country: US (occurrence: US)
  Receive Date: 20241111
  Receipt Date: 20241111
  Transmission Date: 20250114
  Serious: Yes (Life-Threatening, Hospitalization, Other)
  Sender: JUBILANT
  Company Number: US-JUBILANT PHARMA LTD-2024US000245

PATIENT
  Age: 8 Year
  Sex: Male

DRUGS (2)
  1. OLANZAPINE [Suspect]
     Active Substance: OLANZAPINE
     Indication: Sedation
     Dosage: 5 MG
     Route: 048
  2. OLANZAPINE [Suspect]
     Active Substance: OLANZAPINE
     Indication: Agitation

REACTIONS (20)
  - Neuroleptic malignant syndrome [Recovered/Resolved]
  - Diarrhoea [Recovered/Resolved]
  - Metabolic acidosis [Recovered/Resolved]
  - Muscle rigidity [Recovered/Resolved]
  - Tachycardia [Recovered/Resolved]
  - Tachypnoea [Recovered/Resolved]
  - Mental status changes [Recovered/Resolved]
  - Leukocytosis [Recovered/Resolved]
  - Thrombocytosis [Recovered/Resolved]
  - Blood glucose decreased [Recovered/Resolved]
  - Aggression [Recovering/Resolving]
  - Dystonia [Recovering/Resolving]
  - Oculogyric crisis [Recovering/Resolving]
  - Hypoglycaemia [Recovered/Resolved]
  - Hypertransaminasaemia [Recovering/Resolving]
  - Electrolyte imbalance [Recovering/Resolving]
  - Acute kidney injury [Recovering/Resolving]
  - Acute hepatic failure [Recovering/Resolving]
  - Coagulopathy [Recovering/Resolving]
  - Depressed level of consciousness [Recovering/Resolving]
